FAERS Safety Report 9290387 (Version 1)
Quarter: 2013Q2

REPORT INFORMATION
  Report Type: Spontaneous
  Country: CH (occurrence: CH)
  Receive Date: 20130515
  Receipt Date: 20130515
  Transmission Date: 20140414
  Serious: Yes (Hospitalization)
  Sender: FDA-Public Use
  Company Number: CH-PFIZER INC-2013145818

PATIENT
  Age: 74 Year
  Sex: Female

DRUGS (6)
  1. SOLU-MEDROL [Suspect]
     Dosage: 125 MG, UNK
     Route: 041
     Dates: start: 20130309, end: 20130311
  2. ROCEPHIN [Suspect]
     Dosage: 2 G, 1X/DAY
     Route: 041
     Dates: start: 20130309, end: 20130309
  3. ADRENALIN [Suspect]
     Dosage: 1 MG, 1X/DAY
     Route: 040
     Dates: start: 20130309, end: 20130309
  4. TAVEGYL [Suspect]
     Dosage: 2 MG, 2X/DAY
     Route: 040
     Dates: start: 20130309, end: 20130311
  5. ATACAND [Concomitant]
     Dosage: 16 MG, 1X/DAY
     Route: 048
     Dates: end: 20130309
  6. MODURETIC [Concomitant]
     Dosage: 1 DF, 1X/DAY
     Route: 048
     Dates: end: 20130309

REACTIONS (3)
  - Type I hypersensitivity [Recovered/Resolved]
  - Hypotension [Recovered/Resolved]
  - Hepatocellular injury [Recovering/Resolving]
